FAERS Safety Report 19644644 (Version 1)
Quarter: 2021Q3

REPORT INFORMATION
  Report Type: Spontaneous
  Country: PL (occurrence: PL)
  Receive Date: 20210802
  Receipt Date: 20210802
  Transmission Date: 20211014
  Serious: Yes (Other)
  Sender: FDA-Public Use
  Company Number: PL-B.I. PHARMACEUTICALS,INC./RIDGEFIELD-2021-BI-117503

PATIENT
  Sex: Female

DRUGS (2)
  1. MICARDIS [Suspect]
     Active Substance: TELMISARTAN
     Indication: HYPERTENSION
     Dosage: 1 TABLET DAILY
  2. MICARDIS PLUS [Suspect]
     Active Substance: HYDROCHLOROTHIAZIDE\TELMISARTAN
     Indication: HYPERTENSION
     Dosage: 1 TABLET DAILY

REACTIONS (18)
  - Diarrhoea [Unknown]
  - Disturbance in attention [Unknown]
  - Thirst [Unknown]
  - Suicidal ideation [Unknown]
  - Back pain [Unknown]
  - Decreased activity [Unknown]
  - Hypertension [Unknown]
  - Feeling abnormal [Unknown]
  - Depression [Unknown]
  - Decreased appetite [Unknown]
  - Nocturia [Unknown]
  - Product prescribing issue [Unknown]
  - Tearfulness [Unknown]
  - Mood swings [Unknown]
  - Disorientation [Unknown]
  - Urine odour abnormal [Unknown]
  - Erythema [Unknown]
  - Asthenia [Unknown]
